FAERS Safety Report 23559378 (Version 1)
Quarter: 2024Q1

REPORT INFORMATION
  Report Type: Spontaneous
  Country: US (occurrence: None)
  Receive Date: 20240223
  Receipt Date: 20240223
  Transmission Date: 20240410
  Serious: Yes (Death)
  Sender: FDA-Public Use
  Company Number: None

PATIENT
  Age: 75 Year
  Sex: Male
  Weight: 86.58 kg

DRUGS (7)
  1. REVLIMID [Suspect]
     Active Substance: LENALIDOMIDE
     Indication: Plasma cell myeloma
     Dosage: FREQUENCY : DAILY;?
     Route: 048
     Dates: start: 20210413, end: 20240124
  2. DEXAMETHASONE [Concomitant]
     Active Substance: DEXAMETHASONE
  3. aspirin 325 mg tablet [Concomitant]
  4. LOSARTAN [Concomitant]
     Active Substance: LOSARTAN
  5. metoprolol succinate ER 50 mg tablet,extended release 24 hr [Concomitant]
  6. Claritin-D 12 Hour 5 mg-120 mg tablet,extended release [Concomitant]
  7. pravastatin 40 mg tablet [Concomitant]

REACTIONS (1)
  - Death [None]

NARRATIVE: CASE EVENT DATE: 20240212
